FAERS Safety Report 8505968-X (Version None)
Quarter: 2012Q3

REPORT INFORMATION
  Report Type: 
  Country: None (occurrence: None)
  Receive Date: 20120712
  Receipt Date: 20120702
  Transmission Date: 20120928
  Serious: Yes (Hospitalization)
  Sender: FDA-Public Use
  Company Number: US-GLAXOSMITHKLINE-A0984006A

PATIENT
  Sex: Male

DRUGS (2)
  1. VOTRIENT [Suspect]
     Indication: RENAL CANCER
     Dosage: 800MG PER DAY
     Route: 048
  2. UNKNOWN [Concomitant]

REACTIONS (4)
  - DIALYSIS RELATED COMPLICATION [None]
  - ASTHENIA [None]
  - ANAEMIA [None]
  - SEPSIS [None]
